FAERS Safety Report 17780090 (Version 1)
Quarter: 2020Q2

REPORT INFORMATION
  Report Type: Spontaneous
  Country: NO (occurrence: NO)
  Receive Date: 20200514
  Receipt Date: 20200514
  Transmission Date: 20200714
  Serious: Yes (Other)
  Sender: FDA-Public Use
  Company Number: NO-AMGEN-NORSP2020076814

PATIENT
  Age: 44 Year
  Sex: Male

DRUGS (10)
  1. PARACETAMOL [Concomitant]
     Active Substance: ACETAMINOPHEN
     Dosage: UNK UNK, AS NECESSARY, 1 UP TO 4 TIMES A DAY
  2. ULTRACORTENOL [PREDNISOLONE ACETATE] [Concomitant]
     Dosage: 5 PERCENT
  3. REPATHA [Suspect]
     Active Substance: EVOLOCUMAB
     Indication: HYPERCHOLESTEROLAEMIA
     Dosage: 140 MILLIGRAM, Q2WK
     Route: 058
     Dates: start: 201911, end: 20200318
  4. CIMZIA [Suspect]
     Active Substance: CERTOLIZUMAB PEGOL
     Indication: ANKYLOSING SPONDYLITIS
     Dosage: 200 MILLIGRAM, Q2WK
     Route: 058
     Dates: start: 2016
  5. VIMOVO [Concomitant]
     Active Substance: ESOMEPRAZOLE MAGNESIUM\NAPROXEN
     Dosage: 20/500 MILLIGRAM, AS NECESSARY (1 TABLET 2 TIMES A DAY)
  6. SPERSADEX [Concomitant]
     Active Substance: DEXAMETHASONE SODIUM PHOSPHATE
     Dosage: 1 MILLIGRAM PER MILLILITRE
  7. CYCLOPENTOLAT MINIMS [Concomitant]
  8. ALBYL-E [Concomitant]
     Active Substance: ASPIRIN\MAGNESIUM OXIDE
     Dosage: 75 MILLIGRAM, QD
     Route: 048
  9. NAPROXEN MYLAN [Concomitant]
     Active Substance: NAPROXEN
     Dosage: 250 MILLIGRAM, AS NECESSARY, 1 TABLET UP TO 2-3 TIMES A DAY FOR UP TO 5-6 DAYS AT A
  10. PANTOPRAZOL ACTAVIS [Concomitant]
     Active Substance: PANTOPRAZOLE SODIUM
     Dosage: 20 MILLIGRAM, AS NECESSARY, 1 TABLET A DAY

REACTIONS (2)
  - Drug interaction [Recovering/Resolving]
  - Ankylosing spondylitis [Recovering/Resolving]

NARRATIVE: CASE EVENT DATE: 2019
